FAERS Safety Report 8805838 (Version 1)
Quarter: 2012Q4

REPORT INFORMATION
  Report Type: Spontaneous
  Country: US (occurrence: None)
  Receive Date: 20120917
  Receipt Date: 20120917
  Transmission Date: 20130627
  Serious: Yes (Hospitalization)
  Sender: FDA-Public Use
  Company Number: AUR-APL-2012-03874

PATIENT
  Age: 63 Year
  Sex: Female

DRUGS (6)
  1. CEFOTAXIME [Suspect]
     Indication: PNEUMONIA
  2. CIFRAN [Suspect]
  3. METRONIDAZOLE (METRONIDAZOLE) [Suspect]
  4. CIPROFLOXACIN (CIPROFLOXACIN) [Suspect]
  5. SUMAMED [Suspect]
  6. AMOXICILLIN + CLAVULANIC ACID [Suspect]
     Dosage: 3.6 gm (1.2 gm, 3 in 1 D), Intravenous bolus
     Route: 040

REACTIONS (5)
  - Alveolitis allergic [None]
  - Asthenia [None]
  - Decreased appetite [None]
  - Pulmonary fibrosis [None]
  - Pleurisy [None]
